FAERS Safety Report 11845757 (Version 1)
Quarter: 2015Q4

REPORT INFORMATION
  Report Type: Spontaneous
  Country: US (occurrence: US)
  Receive Date: 20151217
  Receipt Date: 20151217
  Transmission Date: 20160305
  Serious: No
  Sender: FDA-Public Use
  Company Number: US-PFIZER INC-2015399065

PATIENT
  Sex: Female

DRUGS (1)
  1. IBRANCE [Suspect]
     Active Substance: PALBOCICLIB
     Indication: NEOPLASM MALIGNANT
     Dosage: 125 MG, CYCLIC (1 CAP PO QD X 21 DAYS, 7 DAYS OFF)
     Route: 048
     Dates: start: 20151027

REACTIONS (6)
  - Fatigue [Unknown]
  - Dyspnoea [Not Recovered/Not Resolved]
  - Epistaxis [Unknown]
  - Neoplasm malignant [Unknown]
  - Disease progression [Unknown]
  - Dizziness [Unknown]

NARRATIVE: CASE EVENT DATE: 20151114
